FAERS Safety Report 5013425-0 (Version None)
Quarter: 2006Q2

REPORT INFORMATION
  Report Type: 
  Country: None (occurrence: None)
  Receive Date: 20060525
  Receipt Date: 20060504
  Transmission Date: 20061013
  Serious: Yes (Hospitalization)
  Sender: FDA-Public Use
  Company Number: US200605001227

PATIENT
  Age: 17 Year
  Sex: Male

DRUGS (2)
  1. HUMULIN R [Suspect]
     Indication: DIABETES MELLITUS
     Dates: start: 20060330
  2. HUMULIN N [Suspect]
     Indication: DIABETES MELLITUS
     Dates: start: 20060330

REACTIONS (2)
  - SUICIDAL IDEATION [None]
  - WRONG TECHNIQUE IN DRUG USAGE PROCESS [None]
